FAERS Safety Report 8507977-3 (Version None)
Quarter: 2012Q3

REPORT INFORMATION
  Report Type: 
  Country: None (occurrence: None)
  Receive Date: 20120713
  Receipt Date: 20120702
  Transmission Date: 20120928
  Serious: Yes (Death, Life-Threatening)
  Sender: FDA-Public Use
  Company Number: JP-AMGEN-JPNCT2012021567

PATIENT
  Age: 74 Year
  Sex: Female
  Weight: 38 kg

DRUGS (21)
  1. ROMIPLOSTIM [Suspect]
     Indication: IDIOPATHIC THROMBOCYTOPENIC PURPURA
     Dosage: 1 MUG/KG, QWK
     Route: 058
     Dates: start: 20110910, end: 20110924
  2. ROMIPLOSTIM [Suspect]
     Dosage: 5 MUG/KG, QWK
     Route: 058
     Dates: start: 20111119, end: 20111126
  3. PREDNISOLONE [Concomitant]
     Indication: IDIOPATHIC THROMBOCYTOPENIC PURPURA
     Dosage: UNK MG, UNK
     Route: 048
     Dates: start: 20110820, end: 20120131
  4. LENDEM [Concomitant]
     Indication: INSOMNIA
     Dosage: UNCERTAINTY
     Route: 048
  5. PENMALIN [Concomitant]
     Indication: PNEUMONIA ASPIRATION
     Dosage: UNCERTAINTY
     Route: 065
  6. ROMIPLOSTIM [Suspect]
     Dosage: 4 MUG/KG, QWK
     Route: 058
     Dates: start: 20111105, end: 20111112
  7. ROMIPLOSTIM [Suspect]
     Dosage: 5 MUG/KG, QWK
     Route: 058
     Dates: start: 20120121, end: 20120121
  8. AMBROXOL HYDROCHLORIDE [Concomitant]
     Indication: CHRONIC OBSTRUCTIVE PULMONARY DISEASE
     Dosage: UNCERTAINTY
     Route: 048
  9. CLARITIN [Concomitant]
     Indication: PRURITUS
     Dosage: UNCERTAINTY
     Route: 048
  10. ROMIPLOSTIM [Suspect]
     Dosage: 6 MUG/KG, QWK
     Route: 058
     Dates: start: 20120107, end: 20120114
  11. THEOPHYLLINE [Concomitant]
     Indication: CHRONIC OBSTRUCTIVE PULMONARY DISEASE
     Dosage: UNCERTAINTY
     Route: 048
  12. ROMIPLOSTIM [Suspect]
     Dosage: 3 MUG/KG, QWK
     Route: 058
     Dates: start: 20111015, end: 20111029
  13. MUCODYNE [Concomitant]
     Indication: CHRONIC OBSTRUCTIVE PULMONARY DISEASE
     Dosage: UNCERTAINTY
     Route: 048
  14. TANATRIL [Concomitant]
     Indication: HYPERTENSION
     Dosage: UNCERTAINTY
     Route: 048
  15. ROMIPLOSTIM [Suspect]
     Dosage: 2 MUG/KG, QWK
     Route: 058
     Dates: start: 20111001, end: 20111008
  16. ROMIPLOSTIM [Suspect]
     Dosage: 6 MUG/KG, QWK
     Route: 058
     Dates: start: 20111203, end: 20111203
  17. ROMIPLOSTIM [Suspect]
     Dosage: 7 MUG/KG, QWK
     Route: 058
     Dates: start: 20111210, end: 20111231
  18. UNIPHYL [Concomitant]
     Indication: CHRONIC OBSTRUCTIVE PULMONARY DISEASE
     Dosage: UNCERTAINTY
     Route: 048
  19. ROMIPLOSTIM [Suspect]
     Dosage: 6 MUG/KG, QWK
     Route: 058
     Dates: start: 20120128, end: 20120128
  20. LASIX [Concomitant]
     Indication: HYPERTENSION
     Dosage: UNCERTAINTY
     Route: 048
  21. SILECE [Concomitant]
     Indication: INSOMNIA
     Dosage: UNCERTAINTY
     Route: 048

REACTIONS (9)
  - INSOMNIA [None]
  - PNEUMONIA ASPIRATION [None]
  - RED BLOOD CELL COUNT DECREASED [None]
  - PSEUDOMEMBRANOUS COLITIS [None]
  - HAEMOGLOBIN DECREASED [None]
  - DEEP VEIN THROMBOSIS [None]
  - PRODUCTIVE COUGH [None]
  - SUBCUTANEOUS ABSCESS [None]
  - CONSTIPATION [None]
